FAERS Safety Report 7347068-0 (Version None)
Quarter: 2011Q1

REPORT INFORMATION
  Report Type: 
  Country: None (occurrence: None)
  Receive Date: 20110302
  Receipt Date: 20110217
  Transmission Date: 20110831
  Serious: Yes (Hospitalization)
  Sender: FDA-Public Use
  Company Number: 027065

PATIENT
  Sex: Male

DRUGS (2)
  1. LACOSAMIDE [Suspect]
     Dosage: 200 MG BID, TABLET TWICE DAILY
     Dates: start: 20100801
  2. KEPPRA [Suspect]
     Dosage: 500 MG BID

REACTIONS (1)
  - MEDICAL DEVICE CHANGE [None]
